FAERS Safety Report 23591386 (Version 1)
Quarter: 2024Q1

REPORT INFORMATION
  Report Type: Spontaneous
  Country: JP (occurrence: JP)
  Receive Date: 20240304
  Receipt Date: 20240304
  Transmission Date: 20240410
  Serious: Yes (Death, Hospitalization, Other)
  Sender: FDA-Public Use
  Company Number: JP-MSD-M2023-53777

PATIENT
  Age: 9 Decade
  Sex: Male

DRUGS (2)
  1. KEYTRUDA [Suspect]
     Active Substance: PEMBROLIZUMAB
     Indication: Squamous cell carcinoma of lung
     Dosage: 200 MILLIGRAM, Q3W
     Route: 041
     Dates: start: 202301, end: 2023
  2. KEYTRUDA [Suspect]
     Active Substance: PEMBROLIZUMAB
     Dosage: 200 MILLIGRAM, Q3W
     Route: 041
     Dates: start: 202305, end: 202310

REACTIONS (3)
  - Death [Fatal]
  - Inguinal hernia [Recovered/Resolved]
  - Immune-mediated adrenal insufficiency [Recovering/Resolving]

NARRATIVE: CASE EVENT DATE: 20230101
